FAERS Safety Report 8791349 (Version 2)
Quarter: 2012Q4

REPORT INFORMATION
  Report Type: Spontaneous
  Country: RU (occurrence: None)
  Receive Date: 20120912
  Receipt Date: 20120926
  Transmission Date: 20130627
  Serious: Yes (Death, Other)
  Sender: FDA-Public Use
  Company Number: ALK-2012-000871

PATIENT
  Age: 46 Year
  Sex: Male

DRUGS (2)
  1. VIVITROL [Suspect]
     Indication: ALCOHOL DEPENDENCE SYNDROME
     Dosage: 380 mg, qmo, intramuscular
     Route: 030
     Dates: start: 20120530, end: 20120730
  2. REXETIN (PAROXETINE HYDROCHLORIDE) [Concomitant]

REACTIONS (8)
  - Completed suicide [None]
  - Depression suicidal [None]
  - Mood altered [None]
  - Apathy [None]
  - Alcohol use [None]
  - Loss of employment [None]
  - Divorced [None]
  - Family stress [None]
